FAERS Safety Report 4650101-8 (Version None)
Quarter: 2005Q2

REPORT INFORMATION
  Report Type: 
  Country: None (occurrence: None)
  Receive Date: 20050428
  Receipt Date: 20050413
  Transmission Date: 20051028
  Serious: No
  Sender: FDA-Public Use
  Company Number: PIR 0504013

PATIENT
  Age: 27 Year
  Sex: Female

DRUGS (1)
  1. PROCALAMINE [Suspect]
     Indication: MEDICAL DIET
     Dosage: 80 ML/HR IV PERIPHERAL
     Route: 042

REACTIONS (5)
  - CONTUSION [None]
  - INJECTION SITE HAEMORRHAGE [None]
  - INJECTION SITE NECROSIS [None]
  - INJECTION SITE PAIN [None]
  - NAUSEA [None]
